FAERS Safety Report 5147180-0 (Version None)
Quarter: 2006Q4

REPORT INFORMATION
  Report Type: 
  Country: None (occurrence: None)
  Receive Date: 20061103
  Receipt Date: 20061018
  Transmission Date: 20070319
  Serious: No
  Sender: FDA-Public Use
  Company Number: 36486

PATIENT
  Sex: Male

DRUGS (1)
  1. BRINZOLAMIDE 1% SUSPENSION [Suspect]
     Dosage: OPHT
     Route: 047
     Dates: start: 20051201

REACTIONS (1)
  - CEREBROVASCULAR ACCIDENT [None]
